FAERS Safety Report 18901874 (Version 1)
Quarter: 2021Q1

REPORT INFORMATION
  Report Type: Spontaneous
  Country: US (occurrence: US)
  Receive Date: 20210216
  Receipt Date: 20210216
  Transmission Date: 20210420
  Serious: No
  Sender: FDA-Public Use
  Company Number: US-MYLANLABS-2021M1007721

PATIENT
  Sex: Male
  Weight: 99 kg

DRUGS (1)
  1. WIXELA INHUB [Suspect]
     Active Substance: FLUTICASONE PROPIONATE\SALMETEROL XINAFOATE
     Indication: CHRONIC OBSTRUCTIVE PULMONARY DISEASE
     Dosage: 100/50 MICROGRAM BIWEEKLY (ONE INHALATION TWICE WEEKLY)
     Route: 048
     Dates: start: 20201231, end: 20210202

REACTIONS (3)
  - Oropharyngeal pain [Recovering/Resolving]
  - Off label use [Recovering/Resolving]
  - Dysphonia [Recovering/Resolving]
